FAERS Safety Report 8416629-X (Version None)
Quarter: 2012Q2

REPORT INFORMATION
  Report Type: 
  Country: None (occurrence: None)
  Receive Date: 20120606
  Receipt Date: 20120529
  Transmission Date: 20120825
  Serious: Yes (Other)
  Sender: FDA-Public Use
  Company Number: US-VERTEX PHARMACEUTICALS INC.-AE-2012-005576

PATIENT
  Sex: Female
  Weight: 23.608 kg

DRUGS (4)
  1. RIBAVIRIN [Concomitant]
     Indication: HEPATITIS C
     Dates: start: 20120308, end: 20120409
  2. OMEPRAZOLE [Concomitant]
  3. PEGASYS [Concomitant]
     Indication: HEPATITIS C
     Dates: start: 20120308, end: 20120409
  4. INCIVEK [Suspect]
     Indication: HEPATITIS C
     Route: 048
     Dates: start: 20120308, end: 20120409

REACTIONS (3)
  - RENAL FAILURE [None]
  - MENTAL DISORDER [None]
  - GASTROINTESTINAL DISORDER [None]
